FAERS Safety Report 5428020-9 (Version None)
Quarter: 2007Q3

REPORT INFORMATION
  Report Type: 
  Country: None (occurrence: None)
  Receive Date: 20070731
  Receipt Date: 20070521
  Transmission Date: 20080115
  Serious: No
  Sender: FDA-Public Use
  Company Number: US200705005480

PATIENT
  Age: 61 Year
  Sex: Female

DRUGS (5)
  1. BYETTA [Suspect]
     Indication: TYPE 2 DIABETES MELLITUS
     Dosage: 5 UG, 2/D, SUBCUTANEOUS
     Route: 058
     Dates: start: 20070517, end: 20070517
  2. METFORMIN HCL [Concomitant]
  3. GLIPIZIDE [Concomitant]
  4. CLONAZEPAM [Concomitant]
  5. HYDROXYZINE [Concomitant]

REACTIONS (6)
  - ANOREXIA [None]
  - ANXIETY [None]
  - BLOOD GLUCOSE DECREASED [None]
  - NAUSEA [None]
  - SINUS CONGESTION [None]
  - TREMOR [None]
